FAERS Safety Report 5528024-1 (Version None)
Quarter: 2007Q4

REPORT INFORMATION
  Report Type: 
  Country: None (occurrence: None)
  Receive Date: 20071128
  Receipt Date: 20071119
  Transmission Date: 20080405
  Serious: Yes (Death, Hospitalization)
  Sender: FDA-Public Use
  Company Number: NL-PURDUE-GBR_2007_0003493

PATIENT
  Age: 90 Year
  Sex: Female

DRUGS (2)
  1. OXYCONTIN [Suspect]
     Indication: PLEURAL EFFUSION
     Dosage: 5 MG, BID
     Route: 065
     Dates: start: 20050405, end: 20050406
  2. TEMAZEPAM [Concomitant]
     Indication: INSOMNIA
     Dosage: 10 MG, UNK
     Route: 065

REACTIONS (1)
  - HOSPITALISATION [None]
